FAERS Safety Report 4366297-1 (Version None)
Quarter: 2004Q2

REPORT INFORMATION
  Report Type: 
  Country: None (occurrence: None)
  Receive Date: 20040524
  Receipt Date: 20040312
  Transmission Date: 20050107
  Serious: No
  Sender: FDA-Public Use
  Company Number: SU-2004-002228

PATIENT

DRUGS (1)
  1. BENICAR [Suspect]
     Indication: HYPERTENSION

REACTIONS (1)
  - DIZZINESS [None]
